FAERS Safety Report 21911144 (Version 1)
Quarter: 2023Q1

REPORT INFORMATION
  Report Type: Spontaneous
  Country: US (occurrence: US)
  Receive Date: 20230125
  Receipt Date: 20230125
  Transmission Date: 20230418
  Serious: No
  Sender: FDA-Public Use
  Company Number: US-MYLANLABS-2023M1003087

PATIENT
  Sex: Female
  Weight: 95.25 kg

DRUGS (4)
  1. LYRICA [Suspect]
     Active Substance: PREGABALIN
     Indication: Back pain
     Dosage: 75 MILLIGRAM, QD (ONE PILL ON THE FIRST DAY)
     Route: 065
  2. LYRICA [Suspect]
     Active Substance: PREGABALIN
     Indication: Hypoaesthesia
     Dosage: 75 MILLIGRAM, BID (TWO PILLS ON THE SECOND DAY)
     Route: 065
  3. LYRICA [Suspect]
     Active Substance: PREGABALIN
     Indication: Pain in extremity
     Dosage: 75 MILLIGRAM, TID (THREE PILLS ON THE THIRD DAY)
     Route: 065
  4. SYNTHROID [Concomitant]
     Active Substance: LEVOTHYROXINE SODIUM
     Dosage: UNK
     Route: 065

REACTIONS (6)
  - Fatigue [Not Recovered/Not Resolved]
  - Lethargy [Not Recovered/Not Resolved]
  - Somnolence [Not Recovered/Not Resolved]
  - Confusional state [Not Recovered/Not Resolved]
  - Dizziness [Not Recovered/Not Resolved]
  - Off label use [Unknown]
